FAERS Safety Report 17729938 (Version 1)
Quarter: 2020Q2

REPORT INFORMATION
  Report Type: Spontaneous
  Country: None (occurrence: US)
  Receive Date: 20200430
  Receipt Date: 20200430
  Transmission Date: 20200714
  Serious: No
  Sender: FDA-Public Use
  Company Number: US-SMARTPRACTICE DENMARK APS-2083365

PATIENT
  Age: 64 Year
  Sex: Male

DRUGS (1)
  1. T.R.U.E. TEST (THIN-LAYER RAPID USE EPICUTANEOUS PATCH TEST) [Suspect]
     Active Substance: ALLERGEN PATCH TEST
     Indication: DERMATITIS CONTACT
     Route: 061
     Dates: start: 20190218, end: 20190220

REACTIONS (1)
  - Administration site reaction [Recovered/Resolved]

NARRATIVE: CASE EVENT DATE: 20190220
